FAERS Safety Report 7124409-0 (Version None)
Quarter: 2010Q4

REPORT INFORMATION
  Report Type: 
  Country: None (occurrence: None)
  Receive Date: 20101126
  Receipt Date: 20101117
  Transmission Date: 20110411
  Serious: Yes (Life-Threatening, Hospitalization, Other)
  Sender: FDA-Public Use
  Company Number: FR-BRISTOL-MYERS SQUIBB COMPANY-15405897

PATIENT
  Age: 69 Year
  Sex: Male

DRUGS (6)
  1. GLUCOPHAGE [Suspect]
     Indication: INSULIN-REQUIRING TYPE 2 DIABETES MELLITUS
     Dosage: STRENGTH: 1000MG.
     Route: 048
     Dates: start: 20061001, end: 20101018
  2. VALSARTAN  AND HYDROCHLOROTHIAZIDE [Concomitant]
  3. PRAVIGARD PAC (COPACKAGED) [Concomitant]
  4. BISOPROLOL FUMARATE [Concomitant]
  5. SURGAM [Concomitant]
  6. INSULATARD [Concomitant]

REACTIONS (5)
  - CARDIO-RESPIRATORY ARREST [None]
  - DIARRHOEA [None]
  - HYPOGLYCAEMIA [None]
  - LACTIC ACIDOSIS [None]
  - RENAL FAILURE ACUTE [None]
